FAERS Safety Report 6999866-0 (Version None)
Quarter: 2010Q3

REPORT INFORMATION
  Report Type: 
  Country: None (occurrence: None)
  Receive Date: 20100920
  Receipt Date: 20100415
  Transmission Date: 20110219
  Serious: No
  Sender: FDA-Public Use
  Company Number: US-ASTRAZENECA-2007UW06002

PATIENT
  Age: 42 Year
  Sex: Female
  Weight: 138.3 kg

DRUGS (13)
  1. SEROQUEL [Suspect]
     Indication: BIPOLAR DISORDER
     Route: 048
     Dates: start: 20010101, end: 20040908
  2. SEROQUEL [Suspect]
     Indication: SCHIZOAFFECTIVE DISORDER
     Route: 048
     Dates: start: 20010101, end: 20040908
  3. SEROQUEL [Suspect]
     Route: 048
     Dates: start: 20001016, end: 20041122
  4. SEROQUEL [Suspect]
     Route: 048
     Dates: start: 20001016, end: 20041122
  5. ZYPREXA [Suspect]
     Indication: SCHIZOAFFECTIVE DISORDER
     Route: 065
     Dates: start: 19990701, end: 20051101
  6. ZYPREXA [Suspect]
     Indication: BIPOLAR DISORDER
     Route: 065
     Dates: start: 19990701, end: 20051101
  7. MIDRIN [Concomitant]
     Indication: HEADACHE
     Dosage: 2 Q6H
     Route: 048
     Dates: start: 20061210
  8. ABILIFY [Concomitant]
     Dosage: 10 MG TO 30 MG
     Route: 048
     Dates: start: 20050228, end: 20050801
  9. TRIAVIL [Concomitant]
     Dates: start: 19810101, end: 19820101
  10. RISPERDAL [Concomitant]
     Indication: SCHIZOAFFECTIVE DISORDER
     Dates: start: 19970101, end: 19990101
  11. RISPERDAL [Concomitant]
     Indication: BIPOLAR DISORDER
     Dates: start: 19970101, end: 19990101
  12. RISPERDAL [Concomitant]
     Dates: start: 20090701
  13. RISPERDAL [Concomitant]
     Dates: start: 20090701

REACTIONS (4)
  - BLOOD GLUCOSE INCREASED [None]
  - DRUG INTOLERANCE [None]
  - PAIN [None]
  - TYPE 2 DIABETES MELLITUS [None]
